FAERS Safety Report 6034018-2 (Version None)
Quarter: 2009Q1

REPORT INFORMATION
  Report Type: 
  Country: None (occurrence: None)
  Receive Date: 20090112
  Receipt Date: 20090107
  Transmission Date: 20090719
  Serious: Yes (Hospitalization)
  Sender: FDA-Public Use
  Company Number: US-BIOGENIDEC-2007BI022189

PATIENT
  Age: 60 Year
  Sex: Female
  Weight: 49 kg

DRUGS (2)
  1. AVONEX [Suspect]
     Indication: MULTIPLE SCLEROSIS
     Route: 030
     Dates: start: 19990120, end: 20031001
  2. AVONEX [Suspect]
     Route: 030
     Dates: start: 20031001

REACTIONS (4)
  - COLORECTAL CANCER [None]
  - COORDINATION ABNORMAL [None]
  - SCAR [None]
  - WEIGHT DECREASED [None]
